FAERS Safety Report 23725675 (Version 2)
Quarter: 2024Q2

REPORT INFORMATION
  Report Type: Report from Study
  Country: CL (occurrence: CL)
  Receive Date: 20240410
  Receipt Date: 20240417
  Transmission Date: 20240716
  Serious: Yes (Other)
  Sender: FDA-Public Use
  Company Number: CL-002147023-NVSC2024CL068717

PATIENT
  Age: 21 Year
  Sex: Male

DRUGS (3)
  1. KESIMPTA [Suspect]
     Active Substance: OFATUMUMAB
     Indication: Relapsing-remitting multiple sclerosis
     Dosage: 20 MG, QW
     Route: 058
     Dates: start: 20240326
  2. KESIMPTA [Suspect]
     Active Substance: OFATUMUMAB
     Dosage: 20 MG, QW (SECOND LOADING DOSE)
     Route: 058
     Dates: start: 20240402
  3. KESIMPTA [Suspect]
     Active Substance: OFATUMUMAB
     Dosage: 20 MG, QW
     Route: 058
     Dates: start: 20240409

REACTIONS (9)
  - Syncope [Unknown]
  - Head discomfort [Recovering/Resolving]
  - Eye inflammation [Unknown]
  - Pyrexia [Unknown]
  - Asthenia [Unknown]
  - Adverse reaction [Unknown]
  - Panic attack [Unknown]
  - Tremor [Unknown]
  - Headache [Unknown]
